FAERS Safety Report 17954496 (Version 10)
Quarter: 2021Q2

REPORT INFORMATION
  Report Type: Spontaneous
  Country: US (occurrence: US)
  Receive Date: 20200629
  Receipt Date: 20210617
  Transmission Date: 20210717
  Serious: No
  Sender: FDA-Public Use
  Company Number: US-GLAXOSMITHKLINE-US2020AMR112987

PATIENT
  Age: 63 Year
  Sex: Female

DRUGS (8)
  1. ZEJULA [Suspect]
     Active Substance: NIRAPARIB
     Dosage: 200 MG, QD
     Dates: start: 20201106
  2. ZEJULA [Suspect]
     Active Substance: NIRAPARIB
     Dosage: 100 MG, BID
     Route: 048
  3. ZEJULA [Suspect]
     Active Substance: NIRAPARIB
     Dosage: 200 MG, QD
     Route: 048
  4. ZEJULA [Suspect]
     Active Substance: NIRAPARIB
     Dosage: 200 MG, QD
  5. ZEJULA [Suspect]
     Active Substance: NIRAPARIB
     Dosage: 100 MG, BID
     Route: 048
  6. ZEJULA [Suspect]
     Active Substance: NIRAPARIB
     Indication: OVARIAN CANCER
     Dosage: 200 MG, QD
     Dates: start: 20200612
  7. ZEJULA [Suspect]
     Active Substance: NIRAPARIB
     Dosage: 200 MG, QD
  8. ZEJULA [Suspect]
     Active Substance: NIRAPARIB
     Dosage: 200 MG, QD
     Route: 048
     Dates: start: 20200612

REACTIONS (22)
  - Hypersensitivity [Unknown]
  - Breast mass [Unknown]
  - Animal bite [Unknown]
  - Contusion [Unknown]
  - Insomnia [Not Recovered/Not Resolved]
  - Pigmentation disorder [Unknown]
  - Impaired healing [Unknown]
  - Injection site scab [Not Recovered/Not Resolved]
  - Wound haemorrhage [Not Recovered/Not Resolved]
  - Faeces hard [Unknown]
  - Biopsy breast [Unknown]
  - Pruritus [Recovered/Resolved]
  - Drug monitoring procedure not performed [Unknown]
  - Cyst [Unknown]
  - Injection site haemorrhage [Unknown]
  - Erythema [Recovered/Resolved]
  - Platelet count decreased [Unknown]
  - Red blood cell count decreased [Unknown]
  - Injection site bruising [Unknown]
  - Eructation [Not Recovered/Not Resolved]
  - Blood pressure increased [Unknown]
  - Arthropod sting [Recovered/Resolved]

NARRATIVE: CASE EVENT DATE: 202006
